FAERS Safety Report 5923214-8 (Version None)
Quarter: 2008Q4

REPORT INFORMATION
  Report Type: 
  Country: None (occurrence: None)
  Receive Date: 20081015
  Receipt Date: 20080930
  Transmission Date: 20090506
  Serious: Yes (Hospitalization, Other)
  Sender: FDA-Public Use
  Company Number: 2008BI009351

PATIENT
  Age: 51 Year
  Sex: Male
  Weight: 98.4306 kg

DRUGS (1)
  1. TYSABRI [Suspect]
     Indication: MULTIPLE SCLEROSIS
     Dosage: 300 MG; QM; IV
     Route: 042
     Dates: start: 20060912, end: 20080403

REACTIONS (17)
  - ABDOMINAL PAIN [None]
  - BACK PAIN [None]
  - BLOOD BILIRUBIN INCREASED [None]
  - CATHETER RELATED INFECTION [None]
  - CSF GLUCOSE DECREASED [None]
  - DIALYSIS [None]
  - DRUG HYPERSENSITIVITY [None]
  - HERPES ZOSTER OPHTHALMIC [None]
  - IMMUNE SYSTEM DISORDER [None]
  - MENINGITIS ASEPTIC [None]
  - MENINGITIS HERPES [None]
  - MUSCLE STRAIN [None]
  - OPPORTUNISTIC INFECTION [None]
  - OPTIC NEURITIS [None]
  - RASH ERYTHEMATOUS [None]
  - RENAL FAILURE [None]
  - RETINITIS [None]
